FAERS Safety Report 6297301-1 (Version None)
Quarter: 2009Q3

REPORT INFORMATION
  Report Type: 
  Country: None (occurrence: None)
  Receive Date: 20090805
  Receipt Date: 20090723
  Transmission Date: 20100115
  Serious: Yes (Hospitalization)
  Sender: FDA-Public Use
  Company Number: AU-PFIZER INC-2009245105

PATIENT

DRUGS (13)
  1. CHAMPIX [Suspect]
  2. MYCOPHENOLATE MOFETIL [Concomitant]
  3. CYCLOSPORINE [Concomitant]
  4. PERINDOPRIL [Concomitant]
  5. SOMAC [Concomitant]
  6. LIPITOR [Concomitant]
  7. ATENOLOL [Concomitant]
  8. DILTIAZEM [Concomitant]
  9. FOLIC ACID [Concomitant]
  10. PREDNISOLONE [Concomitant]
  11. SERTRALINE [Concomitant]
  12. ZOLPIDEM [Concomitant]
  13. SUDAFED S.A. [Concomitant]

REACTIONS (7)
  - ATAXIA [None]
  - CONFUSIONAL STATE [None]
  - DYSARTHRIA [None]
  - FACIAL PALSY [None]
  - FOAMING AT MOUTH [None]
  - GAIT DISTURBANCE [None]
  - TREMOR [None]
